FAERS Safety Report 25851707 (Version 1)
Quarter: 2025Q3

REPORT INFORMATION
  Report Type: Spontaneous
  Country: EG (occurrence: EG)
  Receive Date: 20250926
  Receipt Date: 20250926
  Transmission Date: 20251020
  Serious: Yes (Other)
  Sender: MERCK SHARP & DOHME LLC
  Company Number: EG-009507513-2208EGY004882

PATIENT
  Age: 28 Year
  Sex: Male

DRUGS (12)
  1. KEYTRUDA [Suspect]
     Active Substance: PEMBROLIZUMAB
     Indication: Squamous cell carcinoma of head and neck
     Dosage: DOSE DESCRIPTION : 200 MILLIGRAM, Q3W?DAILY DOSE : 9.4 MILLIGRAM?REGIMEN DOSE : 200  MILLIGRAM
     Route: 042
     Dates: start: 20220523
  2. KEYTRUDA [Suspect]
     Active Substance: PEMBROLIZUMAB
     Indication: Squamous cell carcinoma of head and neck
     Dates: start: 20220705
  3. KEYTRUDA [Suspect]
     Active Substance: PEMBROLIZUMAB
     Indication: Squamous cell carcinoma of head and neck
  4. KEYTRUDA [Suspect]
     Active Substance: PEMBROLIZUMAB
     Indication: Squamous cell carcinoma of head and neck
     Dates: start: 20220828
  5. KEYTRUDA [Suspect]
     Active Substance: PEMBROLIZUMAB
     Indication: Squamous cell carcinoma of head and neck
     Dates: start: 20220917
  6. KEYTRUDA [Suspect]
     Active Substance: PEMBROLIZUMAB
     Indication: Squamous cell carcinoma of head and neck
     Dates: start: 202509
  7. OSTEOCARE CALCIUM MAGNESIUM VITAMIN D3 [Concomitant]
     Dosage: DOSE DESCRIPTION : ONCE DAILY
     Route: 048
     Dates: start: 20220523, end: 2022
  8. VITAMIN D3 [Concomitant]
     Active Substance: CHOLECALCIFEROL
     Dosage: DOSE DESCRIPTION : ONCE DAILY?DAILY DOSE : 5000 DOSAGE FORM
     Route: 048
     Dates: start: 20220523, end: 2022
  9. NEXIUM I.V. [Concomitant]
     Active Substance: ESOMEPRAZOLE SODIUM
     Dates: start: 20220523, end: 2022
  10. FEROGLOBIN [COPPER SULFATE;FERROUS FUMARATE;FOLIC ACID;PYRIDOXINE H... [Concomitant]
     Dosage: DOSE DESCRIPTION : TWICE DAILY
     Route: 048
     Dates: start: 20220523, end: 2022
  11. CEREBREX [Concomitant]
     Active Substance: CALCIUM GLYCEROPHOSPHATE\CALCIUM PHOSPHATE\GLUTAMIC ACID\VITAMIN B
     Dosage: DOSE DESCRIPTION : 100 MG TAB ( EVERY 12 HOURS)?DAILY DOSE : 200 MILLIGRAM
     Dates: start: 20220523, end: 2022
  12. SOLPADEIN [Concomitant]
     Dosage: DOSE DESCRIPTION : EVERY 8 HOURS?DAILY DOSE : 3 DOSAGE FORM
     Route: 048
     Dates: start: 20220523, end: 2022

REACTIONS (17)
  - Central venous catheterisation [Unknown]
  - Intentional product use issue [Unknown]
  - Malignant neoplasm progression [Unknown]
  - Hepatomegaly [Unknown]
  - Product use issue [Unknown]
  - Product use issue [Unknown]
  - Atelectasis [Unknown]
  - Product use issue [Unknown]
  - Inability to afford medication [Unknown]
  - Product container seal issue [Unknown]
  - Product lot number issue [Unknown]
  - Suspected counterfeit product [Unknown]
  - Suspected counterfeit product [Unknown]
  - Poor quality product administered [Unknown]
  - Sinus disorder [Unknown]
  - General physical health deterioration [Unknown]
  - Pulmonary mass [Unknown]

NARRATIVE: CASE EVENT DATE: 20220101
